FAERS Safety Report 10080645 (Version 1)
Quarter: 2014Q2

REPORT INFORMATION
  Report Type: Spontaneous
  Country: GB (occurrence: GB)
  Receive Date: 20140416
  Receipt Date: 20140416
  Transmission Date: 20141212
  Serious: Yes (Other)
  Sender: FDA-Public Use
  Company Number: GB-SUN PHARMACEUTICAL INDUSTRIES LTD-2014SUN00821

PATIENT
  Sex: Female

DRUGS (6)
  1. OXALIPLATIN [Suspect]
     Indication: RECTAL ADENOCARCINOMA
     Dosage: 6 CYCLES
     Route: 065
  2. OXALIPLATIN [Suspect]
     Dosage: 2 CYCLES
     Route: 065
  3. FLUOROURACIL [Suspect]
     Indication: RECTOSIGMOID CANCER
     Dosage: 6 CYCLES
     Route: 065
  4. FLUOROURACIL [Suspect]
     Dosage: 2 CYCLES
     Route: 065
  5. FLUOROURACIL [Suspect]
     Dosage: 2 CYCLES
     Route: 065
  6. YTTRIUM-90 [Suspect]
     Indication: RADIOTHERAPY
     Dosage: 1.0 GBQ, UNK
     Route: 065

REACTIONS (2)
  - Hepatic steatosis [Unknown]
  - Neuropathy peripheral [Unknown]
